FAERS Safety Report 7930063-8 (Version None)
Quarter: 2011Q4

REPORT INFORMATION
  Report Type: 
  Country: None (occurrence: None)
  Receive Date: 20111117
  Receipt Date: 20111107
  Transmission Date: 20120403
  Serious: Yes (Other)
  Sender: FDA-Public Use
  Company Number: 2011P1010221

PATIENT
  Age: 10 Year
  Sex: Male

DRUGS (5)
  1. RISPERIDONE [Concomitant]
  2. MELATONIN [Concomitant]
  3. FAMOTIDINE [Concomitant]
  4. CLONIDINE [Concomitant]
  5. LITHIUM CARBONATE [Suspect]
     Indication: MANIA
     Dosage: 150 MG;HS;PO ; 600 MG;BID;PO ; 900 MG;BID;PO ; 600 MG;AM;PO ; 900 MG;HS;PO
     Route: 048

REACTIONS (2)
  - EMOTIONAL DISTRESS [None]
  - DYSPHEMIA [None]
